FAERS Safety Report 4678179-6 (Version None)
Quarter: 2005Q2

REPORT INFORMATION
  Report Type: 
  Country: None (occurrence: None)
  Receive Date: 20050527
  Receipt Date: 20050516
  Transmission Date: 20051028
  Serious: Yes (Hospitalization, Other)
  Sender: FDA-Public Use
  Company Number: HQWYE259520JUL04

PATIENT
  Age: 53 Year
  Sex: Female
  Weight: 62.33 kg

DRUGS (12)
  1. RAPAMUNE [Suspect]
     Indication: PROPHYLAXIS AGAINST TRANSPLANT REJECTION
     Dosage: SEE IMAGE
     Dates: start: 20040512
  2. ATENOLOL [Concomitant]
  3. NORVASC [Concomitant]
  4. ACCUPRIL [Concomitant]
  5. COUMADIN [Concomitant]
  6. LASIX [Concomitant]
  7. SYNTHROID [Concomitant]
  8. PROTONIX [Concomitant]
  9. FOSAMAX [Concomitant]
  10. LANTUS [Concomitant]
  11. HUMALOG [Concomitant]
  12. PREDNISONE [Concomitant]

REACTIONS (5)
  - DRUG INEFFECTIVE [None]
  - DRUG LEVEL BELOW THERAPEUTIC [None]
  - HEPATOTOXICITY [None]
  - LIVER TRANSPLANT REJECTION [None]
  - MOUTH ULCERATION [None]
